FAERS Safety Report 8408722-2 (Version None)
Quarter: 2012Q2

REPORT INFORMATION
  Report Type: 
  Country: None (occurrence: None)
  Receive Date: 20120604
  Receipt Date: 20120525
  Transmission Date: 20120825
  Serious: Yes (Hospitalization)
  Sender: FDA-Public Use
  Company Number: SE-ABBOTT-12P-150-0939193-00

PATIENT
  Sex: Male

DRUGS (12)
  1. OMEPAZOL (OMEPAZOL) ENTEROCAPSULE [Concomitant]
     Indication: PROPHYLAXIS AGAINST GASTROINTESTINAL ULCER
     Dates: start: 20110628
  2. SODIUM BICARBONATE [Concomitant]
     Indication: ACIDOSIS
     Dates: start: 20101007
  3. ARANESP [Concomitant]
     Indication: PRODUCT USED FOR UNKNOWN INDICATION
     Dates: start: 20101007
  4. FUROSEMIDE [Concomitant]
     Indication: DIURETIC THERAPY
     Dates: start: 20101007
  5. SODIUM POLYSTYRENE SULFONATE [Concomitant]
     Indication: BLOOD POTASSIUM INCREASED
     Dosage: 1 DOSE/UNIT/DAY, ORAL/RECTAL SUSPENSION
     Dates: start: 20110512
  6. ALLOPURINOL [Concomitant]
     Indication: GOUT
     Dates: start: 20101007
  7. ENALAPRIL MALEATE [Concomitant]
     Indication: HYPERTENSION
     Dosage: BID, TEMP BREAK IF DIARRHEA/VOMITING
     Dates: start: 20101007
  8. ASPIRIN [Concomitant]
     Indication: THROMBOSIS PROPHYLAXIS
     Dates: start: 20120126
  9. ALVEDON [Concomitant]
     Indication: PAIN
     Dosage: 1-2 TABLETS AS NEEDED, MAX 6 TABS/24 HR
     Dates: start: 20110321
  10. TRAMADOL HCL [Concomitant]
     Indication: PRODUCT USED FOR UNKNOWN INDICATION
     Dosage: 1-2 TABS WHEN NEEDED
  11. ZEMPLAR [Suspect]
     Indication: RENAL FAILURE CHRONIC
     Route: 048
     Dates: start: 20110913
  12. FERROUS SULFATE TAB [Concomitant]
     Indication: MINERAL SUPPLEMENTATION
     Dates: start: 20101007

REACTIONS (6)
  - PROSTATOMEGALY [None]
  - MEDICAL DEVICE COMPLICATION [None]
  - CYSTOSCOPY ABNORMAL [None]
  - HAEMATURIA [None]
  - RENAL CYST [None]
  - RENAL ATROPHY [None]
